FAERS Safety Report 9677831 (Version 2)
Quarter: 2013Q4

REPORT INFORMATION
  Report Type: Spontaneous
  Country: JP (occurrence: JP)
  Receive Date: 20131108
  Receipt Date: 20131108
  Transmission Date: 20140711
  Serious: Yes (Other)
  Sender: FDA-Public Use
  Company Number: JP-ROCHE-1247033

PATIENT
  Age: 61 Year
  Sex: Female
  Weight: 46 kg

DRUGS (18)
  1. PERJETA [Suspect]
     Indication: BREAST CANCER RECURRENT
     Dosage: STRENGTH : 420 MG/14 ML
     Route: 041
     Dates: start: 20130917
  2. HERCEPTIN [Suspect]
     Indication: BREAST CANCER RECURRENT
     Dosage: DOSAGE IS UNCERTAIN.
     Route: 041
     Dates: end: 201303
  3. HERCEPTIN [Suspect]
     Indication: BREAST CANCER RECURRENT
     Route: 041
     Dates: start: 2013, end: 20130827
  4. HERCEPTIN [Suspect]
     Route: 041
     Dates: start: 20120903, end: 20121016
  5. HERCEPTIN [Suspect]
     Route: 041
     Dates: start: 20121106, end: 20130304
  6. LAPATINIB TOSILATE [Suspect]
     Indication: BREAST CANCER
     Dosage: DOSAGE IS UNCERTAIN.
     Route: 048
     Dates: end: 201303
  7. OXYCONTIN [Concomitant]
     Indication: BREAST CANCER RECURRENT
     Route: 048
  8. NEXIUM [Concomitant]
     Indication: BREAST CANCER RECURRENT
     Route: 048
  9. FERROMIA [Concomitant]
     Indication: BREAST CANCER RECURRENT
     Route: 048
  10. BIO-THREE [Concomitant]
     Indication: BREAST CANCER RECURRENT
     Route: 048
  11. MOBIC [Concomitant]
     Indication: BREAST CANCER RECURRENT
     Route: 048
  12. MAGLAX [Concomitant]
     Indication: BREAST CANCER RECURRENT
     Route: 048
  13. PANTOSIN [Concomitant]
     Indication: BREAST CANCER RECURRENT
     Route: 048
  14. LYRICA [Concomitant]
     Indication: BREAST CANCER RECURRENT
     Route: 048
  15. ABRAXANE [Concomitant]
     Indication: BREAST CANCER RECURRENT
     Route: 041
     Dates: start: 20120903, end: 20121016
  16. HALAVEN [Concomitant]
     Indication: BREAST CANCER RECURRENT
     Route: 065
     Dates: start: 20121106, end: 20130304
  17. XELODA [Concomitant]
     Indication: BREAST CANCER RECURRENT
     Route: 048
     Dates: start: 20130318, end: 20130906
  18. TYKERB [Concomitant]
     Indication: BREAST CANCER RECURRENT
     Route: 048
     Dates: start: 20130318, end: 20130906

REACTIONS (6)
  - Infusion related reaction [Recovered/Resolved]
  - Altered state of consciousness [Recovered/Resolved]
  - Pyrexia [Recovered/Resolved]
  - Chills [Recovered/Resolved]
  - Tremor [Recovered/Resolved]
  - Infusion related reaction [Recovered/Resolved]
